FAERS Safety Report 17003026 (Version 2)
Quarter: 2020Q1

REPORT INFORMATION
  Report Type: Spontaneous
  Country: CA (occurrence: CA)
  Receive Date: 20191107
  Receipt Date: 20200116
  Transmission Date: 20200409
  Serious: Yes (Hospitalization, Other)
  Sender: FDA-Public Use
  Company Number: CA-AMGEN-CANSP2019180917

PATIENT
  Age: 67 Year
  Sex: Female

DRUGS (4)
  1. EZETIMIBE. [Concomitant]
     Active Substance: EZETIMIBE
     Dosage: UNK
  2. METFORMIN [Concomitant]
     Active Substance: METFORMIN HYDROCHLORIDE
     Dosage: UNK
  3. REPATHA [Suspect]
     Active Substance: EVOLOCUMAB
     Indication: PRODUCT USED FOR UNKNOWN INDICATION
     Dosage: 140 MILLIGRAM
     Route: 065
     Dates: start: 2019
  4. ROSUVASTATIN. [Suspect]
     Active Substance: ROSUVASTATIN
     Indication: PRODUCT USED FOR UNKNOWN INDICATION
     Dosage: UNK
     Route: 065

REACTIONS (6)
  - Drug ineffective [Unknown]
  - Renal injury [Recovering/Resolving]
  - Dehydration [Unknown]
  - Rhabdomyolysis [Unknown]
  - Haematoma [Unknown]
  - Pneumonia [Unknown]
